FAERS Safety Report 6016561-5 (Version None)
Quarter: 2008Q4

REPORT INFORMATION
  Report Type: 
  Country: None (occurrence: None)
  Receive Date: 20081222
  Receipt Date: 20081216
  Transmission Date: 20090506
  Serious: Yes (Hospitalization, Other)
  Sender: FDA-Public Use
  Company Number: JP-ASTRAZENECA-2008AP02291

PATIENT
  Age: 83 Year
  Sex: Female
  Weight: 50 kg

DRUGS (30)
  1. DIPRIVAN [Suspect]
     Indication: SEDATION
     Dosage: ADMINISTERED AT 2.0-1.6 MG/KG/HR.
     Route: 042
     Dates: start: 20080309, end: 20080319
  2. TWINPAL [Concomitant]
     Indication: PARENTERAL NUTRITION
     Route: 041
     Dates: start: 20080306, end: 20080309
  3. TWINPAL [Concomitant]
     Dosage: NUMBER OF SEPARATE DOSES UNKNOWN
     Route: 041
     Dates: start: 20080309, end: 20080310
  4. POTACOL-R [Concomitant]
     Indication: PARENTERAL NUTRITION
     Route: 041
     Dates: start: 20080306, end: 20080310
  5. VITAMEDIN [Concomitant]
     Indication: VITAMIN SUPPLEMENTATION
     Route: 041
     Dates: start: 20080306, end: 20080310
  6. MINOFIT [Concomitant]
     Indication: CHRONIC HEPATITIS
     Route: 041
     Dates: start: 20080306, end: 20080319
  7. CARBENIN [Concomitant]
     Indication: PERITONITIS
     Route: 041
     Dates: start: 20080307, end: 20080310
  8. HUMULIN R [Concomitant]
     Indication: DIABETES MELLITUS
     Dosage: NUMBER OF SEPARATE DOSES UNKNOWN
     Route: 041
     Dates: start: 20080309, end: 20080310
  9. SEISHOKU [Concomitant]
     Dosage: NUMBER OF SEPARATE DOSES UNKNOWN
     Route: 041
     Dates: start: 20080309, end: 20080310
  10. CALCICOL [Concomitant]
     Indication: HYPOCALCAEMIA
     Dosage: NUMBER OF SEPARATE DOSES UNKNOWN
     Route: 065
     Dates: start: 20080309, end: 20080309
  11. ROPION [Concomitant]
     Indication: PYREXIA
     Dosage: NUMBER OF SEPARATE DOSES UNKNOWN
     Route: 041
     Dates: start: 20080309, end: 20080312
  12. LASIX [Concomitant]
     Indication: RENAL IMPAIRMENT
     Dosage: NUMBER OF SEPARATE DOSES UNKNOWN
     Route: 040
     Dates: start: 20080309, end: 20080309
  13. LASIX [Concomitant]
     Dosage: NUMBER OF SEPARATE DOSES UNKNOWN
     Route: 065
     Dates: start: 20080311, end: 20080319
  14. ELASPOL [Concomitant]
     Indication: LUNG DISORDER
     Dosage: NUMBER OF SEPARATE DOSES UNKNOWN
     Route: 041
     Dates: start: 20080309, end: 20080319
  15. FAMOTIDINE [Concomitant]
     Indication: ULCER
     Route: 041
     Dates: start: 20080306, end: 20080310
  16. FAMOTIDINE [Concomitant]
     Indication: GASTRIC ULCER HAEMORRHAGE
     Route: 041
     Dates: start: 20080306, end: 20080310
  17. FAMOTIDINE [Concomitant]
     Dosage: NUMBER OF SEPARATE DOSES UNKNOWN
     Route: 040
     Dates: start: 20080309, end: 20080319
  18. FAMOTIDINE [Concomitant]
     Dosage: NUMBER OF SEPARATE DOSES UNKNOWN
     Route: 040
     Dates: start: 20080309, end: 20080319
  19. NEOPAREN [Concomitant]
     Indication: PARENTERAL NUTRITION
     Dosage: NUMBER OF SEPARATE DOSES UNKNOWN
     Route: 041
     Dates: start: 20080310, end: 20080310
  20. NEOPAREN [Concomitant]
     Dosage: NUMBER OF SEPARATE DOSES UNKNOWN
     Route: 065
     Dates: start: 20080311, end: 20080317
  21. MEDLENIK [Concomitant]
     Indication: PARENTERAL NUTRITION
     Dosage: NUMBER OF SEPARATE DOSES UNKNOWN
     Route: 041
     Dates: start: 20080310, end: 20080319
  22. MINOCYCLINE HCL [Concomitant]
     Indication: POST PROCEDURAL INFECTION
     Dosage: NUMBER OF SEPARATE DOSES UNKNOWN
     Route: 041
     Dates: start: 20080310, end: 20080314
  23. ALBUMIN (HUMAN) [Concomitant]
     Indication: HYPOALBUMINAEMIA
     Dosage: NUMBER OF SEPARATE DOSES UNKNOWN
     Route: 041
     Dates: start: 20080310, end: 20080312
  24. ASPARA K [Concomitant]
     Indication: HYPOKALAEMIA
     Dosage: NUMBER OF SEPARATE DOSES UNKNOWN
     Route: 041
     Dates: start: 20080311, end: 20080319
  25. INOVAN [Concomitant]
     Indication: SHOCK
     Dosage: NUMBER OF SEPARATE DOSES UNKNOWN
     Route: 041
     Dates: start: 20080311, end: 20080319
  26. DIGILANOGEN C [Concomitant]
     Indication: TACHYCARDIA
     Dosage: NUMBER OF SEPARATE DOSES UNKNOWN
     Route: 040
     Dates: start: 20080311, end: 20080311
  27. SOLDACTONE [Concomitant]
     Indication: OEDEMA DUE TO HEPATIC DISEASE
     Dosage: NUMBER OF SEPARATE DOSES UNKNOWN
     Route: 040
     Dates: start: 20080314, end: 20080316
  28. ADONA [Concomitant]
     Indication: HAEMORRHAGE
     Dosage: NUMBER OF SEPARATE DOSES UNKNOWN
     Route: 041
     Dates: start: 20080315, end: 20080317
  29. TRANSAMIN [Concomitant]
     Indication: HAEMORRHAGE
     Dosage: NUMBER OF SEPARATE DOSES UNKNOWN
     Route: 041
     Dates: start: 20080315, end: 20080317
  30. FULCALIQ 3 [Concomitant]
     Indication: PARENTERAL NUTRITION
     Dosage: NUMBER OF SEPARATE DOSES UNKNOWN
     Route: 041
     Dates: start: 20080318, end: 20080319

REACTIONS (3)
  - DELAYED RECOVERY FROM ANAESTHESIA [None]
  - LIVER DISORDER [None]
  - RENAL FAILURE ACUTE [None]
